FAERS Safety Report 16584744 (Version 2)
Quarter: 2019Q3

REPORT INFORMATION
  Report Type: Spontaneous
  Country: US (occurrence: US)
  Receive Date: 20190717
  Receipt Date: 20190718
  Transmission Date: 20191004
  Serious: No
  Sender: FDA-Public Use
  Company Number: US-BAYER-2019-134203

PATIENT
  Age: 69 Year
  Sex: Female
  Weight: 104 kg

DRUGS (1)
  1. MIRALAX [Suspect]
     Active Substance: POLYETHYLENE GLYCOL 3350
     Indication: GASTROINTESTINAL DISORDER
     Dosage: UNK
     Route: 048

REACTIONS (2)
  - Product prescribing issue [Unknown]
  - Flatulence [Unknown]

NARRATIVE: CASE EVENT DATE: 20190716
